FAERS Safety Report 5581692-0 (Version None)
Quarter: 2008Q1

REPORT INFORMATION
  Report Type: 
  Country: None (occurrence: None)
  Receive Date: 20080104
  Receipt Date: 20071221
  Transmission Date: 20080703
  Serious: Yes (Hospitalization)
  Sender: FDA-Public Use
  Company Number: US-AMGEN-US258028

PATIENT
  Sex: Female

DRUGS (2)
  1. ENBREL [Suspect]
     Indication: RHEUMATOID ARTHRITIS
     Route: 058
     Dates: start: 19991001
  2. PLAQUENIL [Concomitant]
     Route: 065
     Dates: start: 19990401

REACTIONS (11)
  - COUGH [None]
  - INJECTION SITE ANAESTHESIA [None]
  - INJECTION SITE PAIN [None]
  - METABOLIC ACIDOSIS [None]
  - MUSCLE SPASMS [None]
  - RHEUMATOID ARTHRITIS [None]
  - RHINORRHOEA [None]
  - SINUSITIS [None]
  - VENTRICULAR TACHYCARDIA [None]
  - VIRAL INFECTION [None]
  - WHITE BLOOD CELL COUNT INCREASED [None]
